FAERS Safety Report 5241998-1 (Version None)
Quarter: 2007Q1

REPORT INFORMATION
  Report Type: 
  Country: None (occurrence: None)
  Receive Date: 20070220
  Receipt Date: 20070208
  Transmission Date: 20070707
  Serious: Yes (Other)
  Sender: FDA-Public Use
  Company Number: FR-PFIZER INC-2007006624

PATIENT
  Sex: Male
  Weight: 67 kg

DRUGS (4)
  1. DALACINE [Suspect]
     Indication: INTERVERTEBRAL DISCITIS
     Dosage: DAILY DOSE:2400MG
     Route: 048
  2. OFLOCET [Suspect]
     Indication: INTERVERTEBRAL DISCITIS
     Dosage: DAILY DOSE:400
     Route: 048
  3. CLOXACILLIN SODIUM [Concomitant]
     Route: 042
  4. OMEPRAZOLE [Concomitant]
     Dosage: DAILY DOSE:20MG
     Route: 048

REACTIONS (1)
  - OEDEMA PERIPHERAL [None]
